FAERS Safety Report 5456319-9 (Version None)
Quarter: 2007Q3

REPORT INFORMATION
  Report Type: 
  Country: None (occurrence: None)
  Receive Date: 20070918
  Receipt Date: 20070912
  Transmission Date: 20080115
  Serious: Yes (Hospitalization)
  Sender: FDA-Public Use
  Company Number: US-MERCK-0607USA01888

PATIENT
  Age: 78 Year
  Sex: Female

DRUGS (1)
  1. FOSAMAX [Suspect]
     Indication: OSTEOPOROSIS
     Route: 048
     Dates: start: 20020709, end: 20060517

REACTIONS (14)
  - ANKLE FRACTURE [None]
  - ANXIETY [None]
  - BRONCHIECTASIS [None]
  - BRONCHITIS VIRAL [None]
  - CHRONIC OBSTRUCTIVE PULMONARY DISEASE [None]
  - DEHYDRATION [None]
  - HYPOVOLAEMIA [None]
  - INFLUENZA [None]
  - JOINT CREPITATION [None]
  - OEDEMA [None]
  - PAIN IN JAW [None]
  - SINUS TACHYCARDIA [None]
  - SINUSITIS [None]
  - SUPRAVENTRICULAR TACHYCARDIA [None]
